FAERS Safety Report 6091291-2 (Version None)
Quarter: 2009Q1

REPORT INFORMATION
  Report Type: 
  Country: None (occurrence: None)
  Receive Date: 20090220
  Receipt Date: 20090220
  Transmission Date: 20090719
  Serious: Yes (Other)
  Sender: FDA-Public Use
  Company Number: None

PATIENT
  Sex: Male

DRUGS (1)
  1. CISPLATIN [Suspect]

REACTIONS (4)
  - LIP SWELLING [None]
  - PRURITUS GENERALISED [None]
  - TONGUE DISORDER [None]
  - URTICARIA [None]
